FAERS Safety Report 7756972-0 (Version None)
Quarter: 2011Q3

REPORT INFORMATION
  Report Type: 
  Country: None (occurrence: None)
  Receive Date: 20110916
  Receipt Date: 20110916
  Transmission Date: 20111222
  Serious: No
  Sender: FDA-Public Use
  Company Number: None

PATIENT
  Age: 56 Year
  Sex: Male
  Weight: 70.306 kg

DRUGS (1)
  1. SEPTOCAINE [Suspect]
     Dosage: 1.8CC

REACTIONS (2)
  - DYSGEUSIA [None]
  - AGEUSIA [None]
